FAERS Safety Report 19877020 (Version 1)
Quarter: 2021Q3

REPORT INFORMATION
  Report Type: Spontaneous
  Country: BR (occurrence: BR)
  Receive Date: 20210924
  Receipt Date: 20210924
  Transmission Date: 20211014
  Serious: Yes (Other)
  Sender: FDA-Public Use
  Company Number: BR-LEO PHARMA-338802

PATIENT
  Age: 32 Year
  Sex: Male
  Weight: 62 kg

DRUGS (2)
  1. PROTOPIC [Suspect]
     Active Substance: TACROLIMUS
     Indication: ECZEMA
     Dosage: DOSAGE : TWICE A DAY
     Route: 065
     Dates: start: 20210906, end: 20210915
  2. CITALOPRAM [Concomitant]
     Active Substance: CITALOPRAM HYDROBROMIDE
     Indication: ANXIETY
     Route: 065
     Dates: start: 20210201

REACTIONS (5)
  - Application site pruritus [Recovered/Resolved]
  - Lymphoma [Unknown]
  - Application site pain [Recovered/Resolved]
  - Eczema [Not Recovered/Not Resolved]
  - Application site erythema [Recovered/Resolved]
